FAERS Safety Report 7969587-6 (Version None)
Quarter: 2011Q4

REPORT INFORMATION
  Report Type: 
  Country: None (occurrence: None)
  Receive Date: 20111212
  Receipt Date: 20111209
  Transmission Date: 20120403
  Serious: Yes (Other)
  Sender: FDA-Public Use
  Company Number: US-PFIZER INC-2011295045

PATIENT
  Sex: Female
  Weight: 99.773 kg

DRUGS (6)
  1. NEXIUM [Concomitant]
     Indication: GASTROOESOPHAGEAL REFLUX DISEASE
     Dosage: 40 MG, DAILY
  2. LIPITOR [Concomitant]
     Indication: BLOOD CHOLESTEROL INCREASED
     Dosage: 10 MG, DAILY
  3. CHANTIX [Suspect]
     Dosage: UNK
     Route: 048
     Dates: start: 20070101, end: 20070101
  4. CHANTIX [Suspect]
     Indication: SMOKING CESSATION THERAPY
     Dosage: 0.5 MG, 1X/DAY
     Route: 048
     Dates: start: 20070101, end: 20070101
  5. CHANTIX [Suspect]
     Dosage: 0.5 MG, UNK
     Route: 048
     Dates: start: 20070101, end: 20070101
  6. EFFEXOR XR [Concomitant]
     Indication: DEPRESSION
     Dosage: 75 MG, DAILY

REACTIONS (5)
  - SUICIDAL IDEATION [None]
  - THINKING ABNORMAL [None]
  - LUNG NEOPLASM [None]
  - PANIC REACTION [None]
  - ABNORMAL BEHAVIOUR [None]
